FAERS Safety Report 21809721 (Version 1)
Quarter: 2023Q1

REPORT INFORMATION
  Report Type: Spontaneous
  Country: IL (occurrence: IL)
  Receive Date: 20230103
  Receipt Date: 20230103
  Transmission Date: 20230417
  Serious: No
  Sender: FDA-Public Use
  Company Number: IL-ALKEM LABORATORIES LIMITED-IL-ALKEM-2022-11694

PATIENT

DRUGS (1)
  1. SIROLIMUS [Suspect]
     Active Substance: SIROLIMUS
     Indication: Klippel-Trenaunay syndrome
     Dosage: 0.05 MILLIGRAM/KILOGRAM, BID (STARTING DOSE)
     Route: 061

REACTIONS (1)
  - Therapy partial responder [Unknown]
